FAERS Safety Report 14843246 (Version 1)
Quarter: 2018Q2

REPORT INFORMATION
  Report Type: Spontaneous
  Country: US (occurrence: US)
  Receive Date: 20180503
  Receipt Date: 20180503
  Transmission Date: 20180711
  Serious: No
  Sender: FDA-Public Use
  Company Number: US-009507513-1804USA011185

PATIENT
  Age: 15 Year
  Sex: Male

DRUGS (2)
  1. PROVENTIL [Suspect]
     Active Substance: ALBUTEROL
     Indication: ASTHMA
     Dosage: UNK
     Route: 048
  2. FLOVENT [Suspect]
     Active Substance: FLUTICASONE PROPIONATE
     Dosage: 2 PUFFS IN THE AM AND 2 PUFFS IN PM
     Dates: start: 201803

REACTIONS (3)
  - Atypical pneumonia [Unknown]
  - Dysgeusia [Unknown]
  - Product quality issue [Unknown]
